APPROVED DRUG PRODUCT: ALBUTEROL SULFATE
Active Ingredient: ALBUTEROL SULFATE
Strength: EQ 4MG BASE
Dosage Form/Route: TABLET, EXTENDED RELEASE;ORAL
Application: A078092 | Product #002
Applicant: RISING PHARMA HOLDING INC
Approved: Jan 29, 2007 | RLD: No | RS: No | Type: DISCN